FAERS Safety Report 9852567 (Version 3)
Quarter: 2014Q1

REPORT INFORMATION
  Report Type: Spontaneous
  Country: IT (occurrence: IT)
  Receive Date: 20140129
  Receipt Date: 20140325
  Transmission Date: 20141002
  Serious: Yes (Hospitalization, Disabling)
  Sender: FDA-Public Use
  Company Number: IT-BRISTOL-MYERS SQUIBB COMPANY-20069993

PATIENT
  Age: 81 Year
  Sex: Female

DRUGS (4)
  1. COUMADIN TABS 5 MG [Suspect]
     Route: 048
     Dates: start: 20000101, end: 20131021
  2. TAPAZOLE [Concomitant]
     Dosage: TABS
  3. DILZENE [Concomitant]
     Dosage: TABS
  4. PROPAFENONE [Concomitant]
     Dosage: TABS

REACTIONS (2)
  - Cerebral haemorrhage [Recovering/Resolving]
  - Fractured sacrum [Recovering/Resolving]
